FAERS Safety Report 4785189-7 (Version None)
Quarter: 2005Q3

REPORT INFORMATION
  Report Type: 
  Country: None (occurrence: None)
  Receive Date: 20050930
  Receipt Date: 20050922
  Transmission Date: 20060218
  Serious: Yes (Hospitalization, Other)
  Sender: FDA-Public Use
  Company Number: US-MERCK-0509USA03456

PATIENT
  Age: 77 Year
  Sex: Male
  Weight: 100 kg

DRUGS (7)
  1. VIOXX [Suspect]
     Indication: ARTHRALGIA
     Route: 048
     Dates: start: 20010913, end: 20041001
  2. ASPIRIN [Concomitant]
     Route: 065
  3. IBUPROFEN [Concomitant]
     Route: 065
  4. GLUCOSAMINE [Concomitant]
     Route: 065
  5. CHONDROITIN [Concomitant]
     Route: 065
  6. COUMADIN [Concomitant]
     Route: 065
  7. TOPROL-XL [Concomitant]
     Route: 065

REACTIONS (6)
  - ARTHROPATHY [None]
  - BENIGN PROSTATIC HYPERPLASIA [None]
  - CEREBROVASCULAR ACCIDENT [None]
  - DIABETES MELLITUS NON-INSULIN-DEPENDENT [None]
  - HYPERLIPIDAEMIA [None]
  - VENTRICULAR DYSFUNCTION [None]
